FAERS Safety Report 18528283 (Version 2)
Quarter: 2021Q4

REPORT INFORMATION
  Report Type: Spontaneous
  Country: US (occurrence: US)
  Receive Date: 20201120
  Receipt Date: 20211229
  Transmission Date: 20220304
  Serious: No
  Sender: FDA-Public Use
  Company Number: US-PFIZER INC-2020457852

PATIENT
  Age: 59 Year
  Sex: Female

DRUGS (1)
  1. XELJANZ XR [Suspect]
     Active Substance: TOFACITINIB CITRATE
     Indication: Rheumatoid arthritis
     Dosage: 11 MG, DAILY
     Route: 048
     Dates: start: 202006, end: 202104

REACTIONS (3)
  - Product dose omission in error [Unknown]
  - Drug ineffective [Unknown]
  - Malaise [Unknown]

NARRATIVE: CASE EVENT DATE: 20200101
